FAERS Safety Report 6371831-6 (Version None)
Quarter: 2009Q3

REPORT INFORMATION
  Report Type: 
  Country: None (occurrence: None)
  Receive Date: 20090923
  Receipt Date: 20090914
  Transmission Date: 20100115
  Serious: Yes (Other)
  Sender: FDA-Public Use
  Company Number: PHHY2009BR27047

PATIENT
  Sex: Female

DRUGS (4)
  1. DIOVAN HCT [Suspect]
     Indication: BLOOD PRESSURE
     Dosage: 1 TABLET (160/12.5 MG ) DAILY
     Route: 048
  2. PURAN T4 [Concomitant]
     Indication: HYPOTHYROIDISM
     Dosage: 1 TABLET DAILY FOR 30 YEARS
     Route: 048
  3. PHENYTOIN SODIUM [Concomitant]
     Indication: CONVULSION
     Dosage: 3 TABLETS DAILY FOR 10 YEARS
     Route: 048
  4. SINVACOR [Concomitant]
     Indication: BLOOD CHOLESTEROL
     Dosage: 1 TABLET (10 MG) DAILY FOR 3 YEARS
     Route: 048

REACTIONS (8)
  - BLOOD PRESSURE DECREASED [None]
  - DIZZINESS [None]
  - FALL [None]
  - HAEMORRHAGE [None]
  - HEAD INJURY [None]
  - NAUSEA [None]
  - SUTURE INSERTION [None]
  - SYNCOPE [None]
